FAERS Safety Report 19140944 (Version 1)
Quarter: 2021Q2

REPORT INFORMATION
  Report Type: Spontaneous
  Country: US (occurrence: US)
  Receive Date: 20210415
  Receipt Date: 20210415
  Transmission Date: 20210717
  Serious: No
  Sender: FDA-Public Use
  Company Number: US-ASTRAZENECA-2021A187700

PATIENT
  Sex: Male

DRUGS (2)
  1. BEVESPI AEROSPHERE [Suspect]
     Active Substance: FORMOTEROL FUMARATE\GLYCOPYRROLATE
     Indication: CHRONIC OBSTRUCTIVE PULMONARY DISEASE
     Dosage: 9/4.8 MCG PER INHALATION
     Route: 055
  2. CYCLOPRILENE [CYCLOPROPANE] [Suspect]
     Active Substance: CYCLOPROPANE
     Route: 065

REACTIONS (1)
  - Decreased bronchial secretion [Unknown]
